FAERS Safety Report 7894734-4 (Version None)
Quarter: 2011Q4

REPORT INFORMATION
  Report Type: 
  Country: None (occurrence: None)
  Receive Date: 20111106
  Receipt Date: 20110818
  Transmission Date: 20120403
  Serious: Yes (Other)
  Sender: FDA-Public Use
  Company Number: US-AMGEN-USASP2011042202

PATIENT
  Age: 48 Year
  Sex: Female
  Weight: 58.05 kg

DRUGS (5)
  1. NAPROXEN [Concomitant]
     Dosage: 250 MG, UNK
  2. FOLIC ACID [Concomitant]
     Dosage: 5 MG, UNK
  3. ENBREL [Suspect]
     Indication: PRODUCT USED FOR UNKNOWN INDICATION
     Dosage: 50 MG, QWK
     Route: 058
  4. VITAMIN C                          /00008001/ [Concomitant]
     Dosage: 250 MG, UNK
  5. SULFASALAZINE [Concomitant]
     Dosage: 500 MG, UNK

REACTIONS (3)
  - INJECTION SITE REACTION [None]
  - INJECTION SITE SWELLING [None]
  - DRUG HYPERSENSITIVITY [None]
